FAERS Safety Report 5919272-7 (Version None)
Quarter: 2008Q4

REPORT INFORMATION
  Report Type: 
  Country: None (occurrence: None)
  Receive Date: 20081015
  Receipt Date: 20081006
  Transmission Date: 20090506
  Serious: Yes (Other)
  Sender: FDA-Public Use
  Company Number: PHHY2008BR10434

PATIENT
  Age: 62 Year
  Sex: Female

DRUGS (3)
  1. DIOVAN [Suspect]
     Indication: HYPERTENSION
     Dosage: 160 MG, QD
     Dates: start: 20080514, end: 20080515
  2. DIOVAN [Suspect]
     Dosage: HALF TABLET (160 MG) PER DAY
     Dates: start: 20080516, end: 20080519
  3. PROPRANOLOL [Concomitant]
     Indication: TACHYCARDIA
     Dosage: 40 MG, QD
     Dates: start: 20040101

REACTIONS (9)
  - ABASIA [None]
  - ACTIVITIES OF DAILY LIVING IMPAIRED [None]
  - CHEST DISCOMFORT [None]
  - CHEST PAIN [None]
  - FATIGUE [None]
  - HEADACHE [None]
  - HYPERTENSION [None]
  - HYPOKINESIA [None]
  - INSOMNIA [None]
